FAERS Safety Report 5927876-0 (Version None)
Quarter: 2008Q4

REPORT INFORMATION
  Report Type: 
  Country: None (occurrence: None)
  Receive Date: 20081023
  Receipt Date: 20081021
  Transmission Date: 20090506
  Serious: Yes (Death)
  Sender: FDA-Public Use
  Company Number: JP-BRISTOL-MYERS SQUIBB COMPANY-14378897

PATIENT
  Age: 40 Decade
  Sex: Male

DRUGS (2)
  1. PARAPLATIN [Suspect]
     Indication: MALIGNANT GLIOMA
     Dosage: ON 25OCT2007, THE TREATMENT WAS SWITCHED TO PARAPLATIN WITH ETOPOSIDE
     Route: 041
     Dates: start: 20070525
  2. ETOPOSIDE [Suspect]

REACTIONS (1)
  - BONE MARROW FAILURE [None]
